FAERS Safety Report 24139373 (Version 1)
Quarter: 2024Q3

REPORT INFORMATION
  Report Type: Spontaneous
  Country: US (occurrence: None)
  Receive Date: 20240726
  Receipt Date: 20240726
  Transmission Date: 20241017
  Serious: Yes (Other)
  Sender: ASTRAZENECA
  Company Number: 2024A165907

PATIENT

DRUGS (1)
  1. TEZSPIRE [Suspect]
     Active Substance: TEZEPELUMAB-EKKO

REACTIONS (11)
  - Pneumonia [Unknown]
  - Pulmonary function test decreased [Unknown]
  - Viral infection [Unknown]
  - Bacterial infection [Unknown]
  - Hypersensitivity [Unknown]
  - Asthma [Unknown]
  - Anxiety [Unknown]
  - Gastrooesophageal reflux disease [Unknown]
  - Illness [Unknown]
  - Decreased activity [Unknown]
  - Drug ineffective [Unknown]
